FAERS Safety Report 17450143 (Version 1)
Quarter: 2020Q1

REPORT INFORMATION
  Report Type: Spontaneous
  Country: US (occurrence: US)
  Receive Date: 20200209
  Receipt Date: 20200209
  Transmission Date: 20200409
  Serious: No
  Sender: FDA-Public Use
  Company Number: None

PATIENT
  Sex: Female

DRUGS (1)
  1. NORDITROPIN [Suspect]
     Active Substance: SOMATROPIN
     Dosage: ?          OTHER FREQUENCY:X6WEEKS;?
     Route: 058

REACTIONS (2)
  - Ankle fracture [None]
  - Wrist fracture [None]
